FAERS Safety Report 6469941-8 (Version None)
Quarter: 2009Q4

REPORT INFORMATION
  Report Type: 
  Country: None (occurrence: None)
  Receive Date: 20091203
  Receipt Date: 20091126
  Transmission Date: 20100525
  Serious: Yes (Other)
  Sender: FDA-Public Use
  Company Number: BR-JNJFOC-20091108221

PATIENT
  Sex: Female

DRUGS (1)
  1. HALDOL [Suspect]
     Indication: ABNORMAL BEHAVIOUR
     Dosage: 2 TABLETS PER DAY, SINCE 15 YEARS
     Route: 065

REACTIONS (2)
  - INSOMNIA [None]
  - PARKINSON'S DISEASE [None]
